FAERS Safety Report 21005373 (Version 1)
Quarter: 2022Q2

REPORT INFORMATION
  Report Type: Spontaneous
  Country: US (occurrence: US)
  Receive Date: 20220624
  Receipt Date: 20220624
  Transmission Date: 20220721
  Serious: No
  Sender: FDA-Public Use
  Company Number: US-BRISTOL-MYERS SQUIBB COMPANY-2022-060606

PATIENT
  Age: 92 Year
  Sex: Male
  Weight: 71.67 kg

DRUGS (1)
  1. ELIQUIS [Suspect]
     Active Substance: APIXABAN
     Indication: Myocardial infarction
     Route: 048
     Dates: start: 20220609

REACTIONS (3)
  - Claustrophobia [Unknown]
  - Sleep disorder [Unknown]
  - Intentional product use issue [Unknown]

NARRATIVE: CASE EVENT DATE: 20220609
